FAERS Safety Report 5329043-0 (Version None)
Quarter: 2007Q2

REPORT INFORMATION
  Report Type: 
  Country: None (occurrence: None)
  Receive Date: 20070518
  Receipt Date: 20070507
  Transmission Date: 20071010
  Serious: Yes (Hospitalization, Other)
  Sender: FDA-Public Use
  Company Number: US-PFIZER INC-2005131124

PATIENT
  Sex: Female

DRUGS (8)
  1. NEURONTIN [Suspect]
     Indication: BIPOLAR DISORDER
  2. NEURONTIN [Suspect]
     Indication: PAIN
  3. CYCLOBENZAPRINE HCL [Suspect]
     Indication: MUSCLE SPASMS
  4. SKELAXIN [Suspect]
  5. ATIVAN [Suspect]
  6. PROPOXYPHENE HYDROCHLORIDE [Suspect]
  7. ALCOHOL [Suspect]
  8. MEDROXYPROGESTERONE [Suspect]
     Route: 048

REACTIONS (7)
  - ALCOHOL POISONING [None]
  - DEPRESSION [None]
  - DRUG INEFFECTIVE [None]
  - MULTIPLE DRUG OVERDOSE [None]
  - RESPIRATORY FAILURE [None]
  - SUICIDE ATTEMPT [None]
  - UNRESPONSIVE TO STIMULI [None]
